FAERS Safety Report 16755701 (Version 2)
Quarter: 2019Q3

REPORT INFORMATION
  Report Type: Spontaneous
  Country: US (occurrence: US)
  Receive Date: 20190829
  Receipt Date: 20190910
  Transmission Date: 20191005
  Serious: Yes (Other)
  Sender: FDA-Public Use
  Company Number: US-AKORN PHARMACEUTICALS-2019AKN01797

PATIENT
  Age: 14 Year
  Sex: Female
  Weight: 61.22 kg

DRUGS (4)
  1. ORTHO TRI CYCLEN [Concomitant]
     Active Substance: ETHINYL ESTRADIOL\NORGESTIMATE
  2. MYORISAN [Suspect]
     Active Substance: ISOTRETINOIN
     Indication: ACNE
     Dosage: 40 MG, 1X/DAY FOR 2 MONTHS
     Route: 048
     Dates: start: 20190131, end: 20190402
  3. MYORISAN [Suspect]
     Active Substance: ISOTRETINOIN
     Dosage: 40 MG, 2X/DAY FOR 3 MONTHS
     Route: 048
     Dates: start: 20190403, end: 2019
  4. MYORISAN [Suspect]
     Active Substance: ISOTRETINOIN
     Indication: ACNE
     Dosage: UNK
     Dates: start: 20190502, end: 2019

REACTIONS (2)
  - Off label use [Recovered/Resolved]
  - Breast abscess [Recovered/Resolved]

NARRATIVE: CASE EVENT DATE: 2019
